FAERS Safety Report 14957084 (Version 1)
Quarter: 2018Q2

REPORT INFORMATION
  Report Type: Report from Study
  Country: BR (occurrence: BR)
  Receive Date: 20180531
  Receipt Date: 20180531
  Transmission Date: 20180711
  Serious: Yes (Other)
  Sender: FDA-Public Use
  Company Number: PHHY2018BR009612

PATIENT
  Age: 92 Year
  Sex: Female
  Weight: 60 kg

DRUGS (3)
  1. EXELON [Suspect]
     Active Substance: RIVASTIGMINE TARTRATE
     Dosage: 2 DF (6 MG), QD ONE CAPSULE AFTER BREAKFAST AND ONE CAPSULE AFTER THE AFTERNOON SNACK
     Route: 048
  2. EXELON [Suspect]
     Active Substance: RIVASTIGMINE TARTRATE
     Dosage: 4 MG, UNK STARTED 12 YEARS AGO OR OVER STOPPED OVER 10 YEARS
     Route: 048
  3. EXELON [Suspect]
     Active Substance: RIVASTIGMINE TARTRATE
     Indication: DEMENTIA ALZHEIMER^S TYPE
     Dosage: 2 MG, UNK STOPPED 12 YEARS AGO
     Route: 048
     Dates: start: 2004

REACTIONS (5)
  - Gait disturbance [Recovered/Resolved with Sequelae]
  - Parkinson^s disease [Not Recovered/Not Resolved]
  - Cerebrovascular accident [Recovering/Resolving]
  - Hemiparesis [Recovering/Resolving]
  - Mobility decreased [Recovering/Resolving]

NARRATIVE: CASE EVENT DATE: 2005
